FAERS Safety Report 9777917 (Version 3)
Quarter: 2014Q1

REPORT INFORMATION
  Report Type: Spontaneous
  Country: US (occurrence: US)
  Receive Date: 20131223
  Receipt Date: 20140214
  Transmission Date: 20141002
  Serious: No
  Sender: FDA-Public Use
  Company Number: US-BIOGENIDEC-2013BI122818

PATIENT
  Age: 53 Year
  Sex: Female

DRUGS (1)
  1. TYSABRI [Suspect]
     Indication: MULTIPLE SCLEROSIS
     Route: 042
     Dates: start: 20071228, end: 20130918

REACTIONS (8)
  - Hypoaesthesia [Not Recovered/Not Resolved]
  - Facial pain [Unknown]
  - Trigeminal neuralgia [Unknown]
  - Electrocardiogram abnormal [Unknown]
  - Neurostimulator implantation [Recovered/Resolved]
  - Subcutaneous abscess [Recovered/Resolved]
  - Headache [Unknown]
  - Staphylococcal infection [Not Recovered/Not Resolved]
